FAERS Safety Report 13483944 (Version 1)
Quarter: 2017Q2

REPORT INFORMATION
  Report Type: Spontaneous
  Country: IT (occurrence: IT)
  Receive Date: 20170426
  Receipt Date: 20170426
  Transmission Date: 20170830
  Serious: Yes (Other)
  Sender: FDA-Public Use
  Company Number: IT-AUROBINDO-AUR-APL-2017-32943

PATIENT
  Sex: Male

DRUGS (1)
  1. RISPERIDONE AUROBINDO FILM-COATED TABLETS 2MG [Suspect]
     Active Substance: RISPERIDONE
     Indication: SHARED PSYCHOTIC DISORDER
     Dosage: 4 MG, DAILY
     Route: 065

REACTIONS (2)
  - Product measured potency issue [Unknown]
  - Drug ineffective [None]
